FAERS Safety Report 5871348-9 (Version None)
Quarter: 2008Q3

REPORT INFORMATION
  Report Type: 
  Country: None (occurrence: None)
  Receive Date: 20080904
  Receipt Date: 20080904
  Transmission Date: 20090109
  Serious: No
  Sender: FDA-Public Use
  Company Number: None

PATIENT
  Sex: Male
  Weight: 129.2752 kg

DRUGS (1)
  1. ERTAPENEM 1GM - MERCK [Suspect]
     Indication: OSTEOMYELITIS
     Dosage: 1 GRAM Q24H IV
     Route: 042
     Dates: start: 20080809, end: 20080821

REACTIONS (1)
  - CONVULSION [None]
